FAERS Safety Report 6055358-7 (Version None)
Quarter: 2009Q1

REPORT INFORMATION
  Report Type: 
  Country: None (occurrence: None)
  Receive Date: 20090128
  Receipt Date: 20090116
  Transmission Date: 20090719
  Serious: Yes (Hospitalization)
  Sender: FDA-Public Use
  Company Number: FR-PFIZER INC-2009157578

PATIENT

DRUGS (3)
  1. VFEND [Suspect]
     Indication: ASPERGILLOMA
     Dosage: 200 MG, 2X/DAY
     Dates: start: 20080401
  2. AMLOR [Concomitant]
     Dosage: UNK
     Dates: start: 20081201
  3. ESIDRIX [Concomitant]
     Dosage: UNK
     Dates: start: 20081201

REACTIONS (1)
  - RHABDOMYOLYSIS [None]
